FAERS Safety Report 4638244-6 (Version None)
Quarter: 2005Q2

REPORT INFORMATION
  Report Type: 
  Country: None (occurrence: None)
  Receive Date: 20050415
  Receipt Date: 20050325
  Transmission Date: 20051028
  Serious: Yes (Hospitalization)
  Sender: FDA-Public Use
  Company Number: USA050394124

PATIENT
  Age: 23 Year
  Sex: Male

DRUGS (4)
  1. ZYPREXA [Suspect]
     Indication: SCHIZOPHRENIA
     Dosage: 2.5 MG/1 AT BEDTIME
     Dates: start: 20050308, end: 20050309
  2. ZYPREXA [Suspect]
     Indication: SCHIZOPHRENIA
     Dosage: 20 MG/1 AT BEDTIME
     Dates: start: 20050310
  3. GEODON [Concomitant]
  4. ATIVAN [Concomitant]

REACTIONS (8)
  - DELUSION [None]
  - DISTURBANCE IN SOCIAL BEHAVIOUR [None]
  - DRUG INTERACTION [None]
  - HALLUCINATION [None]
  - PSYCHOTIC DISORDER [None]
  - REGRESSIVE BEHAVIOUR [None]
  - SCHIZOPHRENIA [None]
  - STARING [None]
